FAERS Safety Report 9605907 (Version 1)
Quarter: 2013Q4

REPORT INFORMATION
  Report Type: Spontaneous
  Country: PT (occurrence: PT)
  Receive Date: 20131008
  Receipt Date: 20131008
  Transmission Date: 20140711
  Serious: Yes (Life-Threatening)
  Sender: FDA-Public Use
  Company Number: PT-ACTAVIS-2013-17785

PATIENT
  Age: 72 Year
  Sex: Female

DRUGS (5)
  1. ZOLPIDEM ACTAVIS [Suspect]
     Indication: INSOMNIA
     Dosage: 10 MG, DAILY
     Route: 048
     Dates: start: 20130906, end: 20130912
  2. PROPYCIL [Concomitant]
     Indication: PRODUCT USED FOR UNKNOWN INDICATION
     Dosage: UNK
     Route: 048
  3. ADT [Concomitant]
     Indication: PRODUCT USED FOR UNKNOWN INDICATION
     Dosage: 25 MG, DAILY
     Route: 048
  4. BROMALEX [Concomitant]
     Indication: PRODUCT USED FOR UNKNOWN INDICATION
     Dosage: 6 MG, DAILY;1/2+1/2+1
     Route: 048
  5. SERTRALINA [Concomitant]
     Indication: PRODUCT USED FOR UNKNOWN INDICATION
     Dosage: 150 MG, DAILY
     Route: 048

REACTIONS (7)
  - VIIth nerve paralysis [Recovering/Resolving]
  - Paraesthesia [Recovering/Resolving]
  - Tongue oedema [Recovering/Resolving]
  - Lip oedema [Recovering/Resolving]
  - Dyspnoea [Recovering/Resolving]
  - Tongue blistering [Recovering/Resolving]
  - Product substitution issue [Recovering/Resolving]
